FAERS Safety Report 9493730 (Version 1)
Quarter: 2013Q3

REPORT INFORMATION
  Report Type: Spontaneous
  Country: CN (occurrence: CN)
  Receive Date: 20130902
  Receipt Date: 20130902
  Transmission Date: 20140515
  Serious: Yes (Other)
  Sender: FDA-Public Use
  Company Number: CN-009507513-1308CHN014318

PATIENT
  Age: 69 Year
  Sex: Male
  Weight: 100 kg

DRUGS (6)
  1. ZOCOR [Suspect]
     Indication: CORONARY ARTERY DISEASE
     Dosage: 20 MG, QD
     Route: 048
     Dates: start: 20121209, end: 20121215
  2. CLOPIDOGREL BISULFATE [Concomitant]
     Dosage: UNK
     Route: 048
     Dates: start: 20121209
  3. ACARBOSE [Concomitant]
     Dosage: UNK
     Route: 048
     Dates: start: 20121209
  4. REPAGLINIDE [Concomitant]
     Dosage: UNK
     Route: 048
     Dates: start: 20121209
  5. IRBESARTAN [Concomitant]
     Dosage: UNK
     Route: 048
     Dates: start: 20121209
  6. ISOSORBIDE MONONITRATE [Concomitant]
     Dosage: UNK
     Route: 048
     Dates: start: 20121209

REACTIONS (1)
  - Drug eruption [Recovering/Resolving]
